FAERS Safety Report 23590172 (Version 4)
Quarter: 2024Q2

REPORT INFORMATION
  Report Type: Other
  Country: JP (occurrence: JP)
  Receive Date: 20240304
  Receipt Date: 20240507
  Transmission Date: 20240716
  Serious: Yes (Death, Other)
  Sender: FDA-Public Use
  Company Number: JP-CHUGAI-2024006254

PATIENT
  Age: 78 Year
  Sex: Male
  Weight: 44 kg

DRUGS (4)
  1. TECENTRIQ [Suspect]
     Active Substance: ATEZOLIZUMAB
     Indication: Hepatocellular carcinoma
     Dosage: 1200 MILLIGRAM, QD
     Route: 065
     Dates: start: 20220715, end: 20221219
  2. AVASTIN [Suspect]
     Active Substance: BEVACIZUMAB
     Indication: Hepatocellular carcinoma
     Dosage: 670 MILLIGRAM, QD
     Route: 065
     Dates: start: 20220715, end: 20221219
  3. URSODIOL [Concomitant]
     Active Substance: URSODIOL
     Dosage: 100 MG
     Route: 065
     Dates: start: 20221017, end: 20221228
  4. ROZEREM [Concomitant]
     Active Substance: RAMELTEON
     Route: 065
     Dates: start: 20221128, end: 20221228

REACTIONS (4)
  - Prerenal failure [Fatal]
  - Altered state of consciousness [Unknown]
  - Disease progression [Unknown]
  - Liver disorder [Unknown]

NARRATIVE: CASE EVENT DATE: 20221219
